FAERS Safety Report 5241718-0 (Version None)
Quarter: 2007Q1

REPORT INFORMATION
  Report Type: 
  Country: None (occurrence: None)
  Receive Date: 20070220
  Receipt Date: 20070208
  Transmission Date: 20070707
  Serious: Yes (Death, Other)
  Sender: FDA-Public Use
  Company Number: LB-ELI_LILLY_AND_COMPANY-LB200702002469

PATIENT
  Sex: Female

DRUGS (1)
  1. XIGRIS [Suspect]
     Indication: SEPSIS
     Dosage: 24 UNK, EVERY HOUR
     Route: 042
     Dates: start: 20060101

REACTIONS (4)
  - COAGULOPATHY [None]
  - CONDITION AGGRAVATED [None]
  - ENDOCARDITIS [None]
  - OLIGURIA [None]
